FAERS Safety Report 13259064 (Version 1)
Quarter: 2017Q1

REPORT INFORMATION
  Report Type: Spontaneous
  Country: US (occurrence: US)
  Receive Date: 20170222
  Receipt Date: 20170222
  Transmission Date: 20170428
  Serious: Yes (Hospitalization, Other)
  Sender: FDA-Public Use
  Company Number: US-AUROBINDO-AUR-APL-2016-13699

PATIENT
  Age: 67 Year
  Sex: Female
  Weight: 59 kg

DRUGS (8)
  1. EPINEPHRINE. [Concomitant]
     Active Substance: EPINEPHRINE
     Indication: PRODUCT USED FOR UNKNOWN INDICATION
     Dosage: UNK, 2.5 MCG/ML
  2. EPINEPHRINE. [Concomitant]
     Active Substance: EPINEPHRINE
     Dosage: UNK, 2.5 MCG/ML
     Route: 065
  3. LIDOCAINE INJECTION [Suspect]
     Active Substance: LIDOCAINE
     Indication: NERVE BLOCK
     Dosage: UNK, 10 TO 15 ML BOLUS
     Route: 065
  4. ROPIVACAINE HYDROCHLORIDE 0.2% [Suspect]
     Active Substance: ROPIVACAINE HYDROCHLORIDE
     Dosage: 8 ML, UNK
     Route: 065
  5. BUPIVACAINE HYDROCHLORIDE 0.5% (5 MG/ML) [Suspect]
     Active Substance: BUPIVACAINE HYDROCHLORIDE
     Dosage: 0.5 %, 12.5 MG
     Route: 065
  6. ROPIVACAINE HYDROCHLORIDE 0.2% [Suspect]
     Active Substance: ROPIVACAINE HYDROCHLORIDE
     Indication: NERVE BLOCK
     Dosage: 8 ML, UNK
     Route: 065
  7. CHLORHEXIDINE [Concomitant]
     Active Substance: CHLORHEXIDINE
     Indication: PRODUCT USED FOR UNKNOWN INDICATION
     Dosage: UNK
     Route: 065
  8. BUPIVACAINE HYDROCHLORIDE 0.5% (5 MG/ML) [Suspect]
     Active Substance: BUPIVACAINE HYDROCHLORIDE
     Indication: SPINAL ANAESTHESIA
     Dosage: 0.5 %, 12.5 MG
     Route: 065

REACTIONS (9)
  - Asthenia [Recovering/Resolving]
  - Dizziness [Unknown]
  - Myositis [Recovering/Resolving]
  - Swelling [Unknown]
  - Hyperreflexia [Recovered/Resolved]
  - Pain in extremity [Recovered/Resolved]
  - Hypotension [Unknown]
  - Arthralgia [Recovered/Resolved]
  - Joint swelling [Recovering/Resolving]
